FAERS Safety Report 8737870 (Version 2)
Quarter: 2013Q4

REPORT INFORMATION
  Report Type: Spontaneous
  Country: JP (occurrence: JP)
  Receive Date: 20120823
  Receipt Date: 20131031
  Transmission Date: 20140711
  Serious: Yes (Other)
  Sender: FDA-Public Use
  Company Number: JP-MERCK-1208JPN005475

PATIENT
  Age: 4 Year
  Sex: Male

DRUGS (3)
  1. GASTER [Suspect]
     Dosage: UNK
     Route: 048
     Dates: start: 2010, end: 20120726
  2. DANTRIUM (DANTROLENE SODIUM) [Suspect]
     Indication: QUADRIPLEGIA
     Dosage: UNK
     Route: 048
     Dates: start: 2010, end: 20120726
  3. CORTICOSTEROIDS (UNSPECIFIED) [Concomitant]

REACTIONS (2)
  - Tachycardia [Not Recovered/Not Resolved]
  - Off label use [Unknown]
